FAERS Safety Report 4945617-0 (Version None)
Quarter: 2006Q1

REPORT INFORMATION
  Report Type: 
  Country: None (occurrence: None)
  Receive Date: 20060117
  Receipt Date: 20051103
  Transmission Date: 20060701
  Serious: Yes (Death, Hospitalization)
  Sender: FDA-Public Use
  Company Number: A03200503524

PATIENT
  Age: 84 Year
  Sex: Male
  Weight: 79.8331 kg

DRUGS (9)
  1. PLAVIX [Suspect]
     Indication: TRANSIENT ISCHAEMIC ATTACK
     Dosage: 75 MG QD - ORAL
     Route: 048
     Dates: start: 20020101
  2. ASPIRIN [Suspect]
     Indication: ARTERIOSCLEROSIS CORONARY ARTERY
     Dosage: 81 MG QD - ORAL
     Route: 048
     Dates: start: 20050322
  3. ASPIRIN [Suspect]
     Indication: CORONARY ARTERY SURGERY
     Dosage: 81 MG QD - ORAL
     Route: 048
     Dates: start: 20050322
  4. GABAPENTIN [Concomitant]
  5. FUROSEMIDE [Concomitant]
  6. COLESVELAM HYDROCHLORIDE [Concomitant]
  7. NIACIN [Concomitant]
  8. TOLTERODINE TARTRATE [Concomitant]
  9. GLYCERYL TRINITRATE [Concomitant]

REACTIONS (2)
  - CEREBRAL HAEMORRHAGE [None]
  - COMA [None]
